FAERS Safety Report 4422870-3 (Version None)
Quarter: 2004Q3

REPORT INFORMATION
  Report Type: 
  Country: None (occurrence: None)
  Receive Date: 20040811
  Receipt Date: 20040730
  Transmission Date: 20050211
  Serious: Yes (Hospitalization)
  Sender: FDA-Public Use
  Company Number: JP-JNJFOC-20040607691

PATIENT
  Sex: Male

DRUGS (14)
  1. REMICADE [Suspect]
     Route: 042
  2. REMICADE [Suspect]
     Route: 042
  3. REMICADE [Suspect]
     Indication: RHEUMATOID ARTHRITIS
     Route: 042
  4. RHEUMATREX [Concomitant]
     Indication: RHEUMATOID ARTHRITIS
     Route: 049
  5. PREDONINE [Concomitant]
     Indication: RHEUMATOID ARTHRITIS
     Dosage: 20-50 MG
     Route: 049
  6. GASTER 10 [Concomitant]
     Indication: RHEUMATOID ARTHRITIS
     Dosage: 2 TABLEETS
     Route: 049
  7. SELBEX [Concomitant]
     Indication: RHEUMATOID ARTHRITIS
     Dosage: 3 CAPSULES
     Route: 049
  8. ONEALFA [Concomitant]
     Indication: RHEUMATOID ARTHRITIS
     Route: 049
  9. BONARON [Concomitant]
     Route: 049
  10. GOODMIN [Concomitant]
     Route: 049
  11. BASEN [Concomitant]
     Dosage: 3 TABLETS
     Route: 049
  12. ACTOS [Concomitant]
     Dosage: 2 TABLETS
     Route: 049
  13. GASTER D [Concomitant]
     Dosage: 2 TABLETS
     Route: 049
  14. 8-HOUR BAYER [Concomitant]
     Route: 049

REACTIONS (16)
  - BACTERIAL INFECTION [None]
  - BLOOD CREATININE INCREASED [None]
  - BLOOD LACTATE DEHYDROGENASE INCREASED [None]
  - BLOOD PRESSURE DECREASED [None]
  - CARDIAC FAILURE [None]
  - CARDIOGENIC SHOCK [None]
  - CONGESTIVE CARDIOMYOPATHY [None]
  - DIARRHOEA [None]
  - FATIGUE [None]
  - JUVENILE ARTHRITIS [None]
  - MYOCARDITIS [None]
  - OLIGURIA [None]
  - PYREXIA [None]
  - RASH [None]
  - REBOUND EFFECT [None]
  - VIRAL INFECTION [None]
